FAERS Safety Report 5830856-7 (Version None)
Quarter: 2008Q3

REPORT INFORMATION
  Report Type: 
  Country: None (occurrence: None)
  Receive Date: 20080801
  Receipt Date: 20080103
  Transmission Date: 20090109
  Serious: No
  Sender: FDA-Public Use
  Company Number: US-BRISTOL-MYERS SQUIBB COMPANY-14030068

PATIENT
  Age: 86 Year
  Sex: Female
  Weight: 59 kg

DRUGS (1)
  1. COUMADIN [Suspect]
     Dosage: 5MG 4 DAYS A WEEK ALTERNATING WITH 2.5MG 3DAYS A WEEK.PRIOR HE TOOK SAME DOSAGE BUT NOT ALTERNATING.
     Dates: start: 20080101

REACTIONS (3)
  - ANOREXIA [None]
  - CHILLS [None]
  - FATIGUE [None]
